FAERS Safety Report 8582299-3 (Version None)
Quarter: 2012Q3

REPORT INFORMATION
  Report Type: 
  Country: None (occurrence: None)
  Receive Date: 20120809
  Receipt Date: 20120619
  Transmission Date: 20120928
  Serious: Yes (Death, Life-Threatening, Hospitalization)
  Sender: FDA-Public Use
  Company Number: ES-ROCHE-1066395

PATIENT
  Sex: Female
  Weight: 62.2 kg

DRUGS (3)
  1. PEGASYS [Suspect]
     Indication: HEPATITIS C
     Dates: start: 20110719, end: 20120315
  2. COPEGUS [Suspect]
     Indication: HEPATITIS C
     Dates: start: 20110719, end: 20120313
  3. BLINDED ALISPORIVIR [Suspect]
     Indication: HEPATITIS C
     Route: 048
     Dates: start: 20110719, end: 20120315

REACTIONS (4)
  - MULTI-ORGAN FAILURE [None]
  - SEPTIC SHOCK [None]
  - RENAL FAILURE [None]
  - CELLULITIS [None]
